FAERS Safety Report 12421582 (Version 6)
Quarter: 2017Q1

REPORT INFORMATION
  Report Type: Report from Study
  Country: DE (occurrence: DE)
  Receive Date: 20160531
  Receipt Date: 20170127
  Transmission Date: 20170428
  Serious: Yes (Other)
  Sender: FDA-Public Use
  Company Number: DE-BRISTOL-MYERS SQUIBB COMPANY-BMS-2016-041896

PATIENT
  Age: 80 Year
  Sex: Female
  Weight: 118 kg

DRUGS (1)
  1. APIXABAN [Suspect]
     Active Substance: APIXABAN
     Indication: EMBOLISM VENOUS
     Dosage: UNK
     Route: 065

REACTIONS (6)
  - Cardiac pacemaker insertion [Unknown]
  - Sinus node dysfunction [Unknown]
  - Dyspnoea [Unknown]
  - Haematoma [Unknown]
  - Hand fracture [Unknown]
  - Fall [Unknown]

NARRATIVE: CASE EVENT DATE: 20160407
